FAERS Safety Report 7244984-5 (Version None)
Quarter: 2011Q1

REPORT INFORMATION
  Report Type: 
  Country: None (occurrence: None)
  Receive Date: 20110126
  Receipt Date: 20110118
  Transmission Date: 20110831
  Serious: Yes (Death, Hospitalization, Other)
  Sender: FDA-Public Use
  Company Number: US-TEVA-263661USA

PATIENT
  Age: 33 Year
  Sex: Female

DRUGS (9)
  1. OXYCODONE [Suspect]
     Route: 048
  2. NORTRIPTYLINE [Suspect]
     Route: 048
  3. PROCET                             /01554201/ [Suspect]
     Route: 048
  4. LISINOPRIL [Suspect]
     Route: 048
  5. TRAZODONE [Suspect]
     Route: 048
  6. DICLOFENAC SODIUM 75 MG DELAYED RELEASED [Suspect]
     Route: 048
  7. ROSIGLITAZONE [Suspect]
     Route: 048
  8. ROSUVASTATIN [Suspect]
     Route: 048
  9. ARIPIPRAZOLE [Suspect]
     Route: 048

REACTIONS (3)
  - DRUG ABUSE [None]
  - TOXICITY TO VARIOUS AGENTS [None]
  - CARDIO-RESPIRATORY ARREST [None]
